FAERS Safety Report 4441956-0 (Version None)
Quarter: 2004Q3

REPORT INFORMATION
  Report Type: 
  Country: None (occurrence: None)
  Receive Date: 20040907
  Receipt Date: 20040903
  Transmission Date: 20050211
  Serious: Yes (Hospitalization)
  Sender: FDA-Public Use
  Company Number: US-GLAXOSMITHKLINE-A0524555A

PATIENT
  Sex: Female

DRUGS (6)
  1. DYAZIDE [Suspect]
     Indication: ILL-DEFINED DISORDER
     Dosage: 40TAB PER DAY
     Route: 048
     Dates: end: 20040831
  2. K-DUR 10 [Concomitant]
     Dosage: 280MEQ PER DAY
     Route: 048
  3. MAGNESIUM [Concomitant]
  4. POTASSIUM PHOSPHATES [Concomitant]
  5. RISPERDAL [Concomitant]
  6. ADDERALL 10 [Concomitant]

REACTIONS (3)
  - DIURETIC ABUSE [None]
  - HYPOKALAEMIA [None]
  - INTENTIONAL OVERDOSE [None]
